FAERS Safety Report 15288668 (Version 1)
Quarter: 2018Q3

REPORT INFORMATION
  Report Type: Spontaneous
  Country: US (occurrence: US)
  Receive Date: 20180817
  Receipt Date: 20180817
  Transmission Date: 20181010
  Serious: Yes (Hospitalization)
  Sender: FDA-Public Use
  Company Number: US-ROCHE-2171147

PATIENT
  Age: 11 Year
  Sex: Male

DRUGS (17)
  1. MONTELUKAST [Suspect]
     Active Substance: MONTELUKAST SODIUM
     Indication: CYSTIC FIBROSIS
     Dosage: CHEW AND SWALLOW 1 TAB DAILY ONGOING: UNKNOWN
     Route: 048
  2. BASAGLAR [Suspect]
     Active Substance: INSULIN GLARGINE
     Indication: CYSTIC FIBROSIS
     Dosage: 13 UNIT DAILY, ONGOING: UNK
     Route: 065
  3. SERTRALINE [Suspect]
     Active Substance: SERTRALINE HYDROCHLORIDE
     Indication: CYSTIC FIBROSIS
     Dosage: 1 TAB DAILY DAILY; ONGOING: UNK
     Route: 048
  4. VENTOLIN [Suspect]
     Active Substance: ALBUTEROL SULFATE
     Indication: CYSTIC FIBROSIS
     Dosage: ONGOING: UNKNOWN
     Route: 055
  5. CETIRIZINE [Suspect]
     Active Substance: CETIRIZINE HYDROCHLORIDE
     Indication: CYSTIC FIBROSIS
     Dosage: DAILY; ONGOING: UNKNOWN
     Route: 048
  6. FLUTICASONE. [Suspect]
     Active Substance: FLUTICASONE
     Indication: CYSTIC FIBROSIS
     Dosage: SPRAY IN NOSTRIL, DAILY
     Route: 045
  7. SODIUM CHLORIDE. [Suspect]
     Active Substance: SODIUM CHLORIDE
     Indication: CYSTIC FIBROSIS
     Dosage: ONGOING: UNKS
     Route: 055
  8. AZTREONAM LYSINE [Suspect]
     Active Substance: AZTREONAM LYSINE
     Indication: CYSTIC FIBROSIS
     Dosage: ONGOING
     Route: 055
     Dates: start: 20180227
  9. PULMOZYME [Suspect]
     Active Substance: DORNASE ALFA
     Indication: CYSTIC FIBROSIS
     Dosage: ONGOING
     Route: 055
     Dates: start: 20150416
  10. ORKAMBI [Suspect]
     Active Substance: IVACAFTOR\LUMACAFTOR
     Indication: CYSTIC FIBROSIS
     Dosage: ONGOING: UNKNOWN
     Route: 048
     Dates: start: 20170717
  11. DULERA [Suspect]
     Active Substance: FORMOTEROL FUMARATE DIHYDRATE\MOMETASONE FUROATE
     Indication: CYSTIC FIBROSIS
     Dosage: ONGOING: UNK
     Route: 055
  12. LANTUS [Suspect]
     Active Substance: INSULIN GLARGINE
     Indication: PRODUCT USED FOR UNKNOWN INDICATION
     Dosage: ONGOING: UNKNOWN
     Route: 065
  13. CULTURELLE [Suspect]
     Active Substance: LACTOBACILLUS RHAMNOSUS
     Indication: CYSTIC FIBROSIS
     Dosage: ONGOING: UNK
     Route: 048
  14. SINGULAIR [Suspect]
     Active Substance: MONTELUKAST SODIUM
     Indication: PRODUCT USED FOR UNKNOWN INDICATION
     Route: 065
  15. HUMALOG [Suspect]
     Active Substance: INSULIN LISPRO
     Indication: PRODUCT USED FOR UNKNOWN INDICATION
     Route: 065
     Dates: start: 20170817
  16. CREON [Suspect]
     Active Substance: PANCRELIPASE AMYLASE\PANCRELIPASE LIPASE\PANCRELIPASE PROTEASE
     Indication: CYSTIC FIBROSIS
     Dosage: 2 TO 3 CAPSULE ORALLY WITH MEALS OR 1 TO 2 CAPSULE WITH SNACK, ONGOING: UNKNOWN
     Route: 048
  17. ALBUTEROL. [Suspect]
     Active Substance: ALBUTEROL
     Indication: CYSTIC FIBROSIS
     Dosage: AS NEEDED; ONGOING: UNK
     Route: 055

REACTIONS (1)
  - Cystic fibrosis [Unknown]

NARRATIVE: CASE EVENT DATE: 20180807
